FAERS Safety Report 21157045 (Version 2)
Quarter: 2022Q4

REPORT INFORMATION
  Report Type: Spontaneous
  Country: US (occurrence: US)
  Receive Date: 20220801
  Receipt Date: 20221028
  Transmission Date: 20230113
  Serious: Yes (Other)
  Sender: FDA-Public Use
  Company Number: US-TEVA-2022-US-2060303

PATIENT
  Sex: Female

DRUGS (6)
  1. FENTANYL [Suspect]
     Active Substance: FENTANYL
     Indication: Product used for unknown indication
     Route: 060
     Dates: start: 2016, end: 2022
  2. SUBSYS [Suspect]
     Active Substance: FENTANYL
     Indication: Product used for unknown indication
     Dosage: 400 MG 4-6 UNIT PER DAY IF NEEDED
     Route: 065
  3. OXYCODONE [Concomitant]
     Active Substance: OXYCODONE
     Indication: Product used for unknown indication
  4. LISINOPRIL [Concomitant]
     Active Substance: LISINOPRIL
     Indication: Product used for unknown indication
  5. POTASSIUM [Concomitant]
     Active Substance: POTASSIUM
     Indication: Product used for unknown indication
  6. CLONAZEPAM [Concomitant]
     Active Substance: CLONAZEPAM
     Indication: Product used for unknown indication

REACTIONS (4)
  - Neoplasm malignant [Unknown]
  - Pain [Unknown]
  - Intentional dose omission [Unknown]
  - Product availability issue [Unknown]
